FAERS Safety Report 17424136 (Version 5)
Quarter: 2021Q4

REPORT INFORMATION
  Report Type: Spontaneous
  Country: US (occurrence: US)
  Receive Date: 20200217
  Receipt Date: 20211129
  Transmission Date: 20220304
  Serious: Yes (Hospitalization, Other)
  Sender: FDA-Public Use
  Company Number: US-GILEAD-2020-0450654

PATIENT
  Age: 48 Year
  Sex: Male
  Weight: 83.9 kg

DRUGS (96)
  1. VIREAD [Suspect]
     Active Substance: TENOFOVIR DISOPROXIL FUMARATE
     Indication: HIV infection
     Dosage: 1 DOSAGE FORM, QD
     Route: 048
     Dates: start: 20070109, end: 200704
  2. VIREAD [Suspect]
     Active Substance: TENOFOVIR DISOPROXIL FUMARATE
     Dosage: 1 DOSAGE FORM, QD
     Route: 048
     Dates: start: 201101, end: 20121024
  3. VIREAD [Suspect]
     Active Substance: TENOFOVIR DISOPROXIL FUMARATE
     Dosage: UNK
     Route: 048
     Dates: start: 20070109, end: 20121024
  4. TRUVADA [Suspect]
     Active Substance: EMTRICITABINE\TENOFOVIR DISOPROXIL FUMARATE
     Indication: HIV infection
     Dosage: 1 DOSAGE FORM, QD
     Route: 048
     Dates: start: 20121017, end: 20141013
  5. SOMATROPIN [Suspect]
     Active Substance: SOMATROPIN
     Indication: Product used for unknown indication
     Dosage: UNK
     Route: 065
  6. BIKTARVY [Concomitant]
     Active Substance: BICTEGRAVIR SODIUM\EMTRICITABINE\TENOFOVIR ALAFENAMIDE FUMARATE
  7. GENVOYA [Concomitant]
     Active Substance: COBICISTAT\ELVITEGRAVIR\EMTRICITABINE\TENOFOVIR ALAFENAMIDE FUMARATE
  8. ISENTRESS [Concomitant]
     Active Substance: RALTEGRAVIR POTASSIUM
     Indication: HIV infection
     Dosage: UNK
     Route: 065
  9. BUPROPION [Concomitant]
     Active Substance: BUPROPION
  10. VIRACEPT [Concomitant]
     Active Substance: NELFINAVIR MESYLATE
  11. METOPROLOL TARTRATE [Concomitant]
     Active Substance: METOPROLOL TARTRATE
  12. LORAZEPAM [Concomitant]
     Active Substance: LORAZEPAM
  13. ACYCLOVIR [Concomitant]
     Active Substance: ACYCLOVIR
  14. LIPITOR [Concomitant]
     Active Substance: ATORVASTATIN CALCIUM
  15. OMEPRAZOLE [Concomitant]
     Active Substance: OMEPRAZOLE
  16. ZIAGEN [Concomitant]
     Active Substance: ABACAVIR SULFATE
  17. K-TAB [Concomitant]
     Active Substance: POTASSIUM CHLORIDE
  18. AMOXICILLIN AND CLAVULANATE POTASSIUM [Concomitant]
     Active Substance: AMOXICILLIN\CLAVULANATE POTASSIUM
  19. FLUTICASONE PROPIONATE [Concomitant]
     Active Substance: FLUTICASONE PROPIONATE
  20. HYDROCHLOROTHIAZIDE [Concomitant]
     Active Substance: HYDROCHLOROTHIAZIDE
  21. AMLODIPINE [Concomitant]
     Active Substance: AMLODIPINE BESYLATE
  22. LEVITRA [Concomitant]
     Active Substance: VARDENAFIL HYDROCHLORIDE
  23. MELOXICAM [Concomitant]
     Active Substance: MELOXICAM
  24. POTASSIUM CHLORIDE [Concomitant]
     Active Substance: POTASSIUM CHLORIDE
  25. ABACAVIR [Concomitant]
     Active Substance: ABACAVIR
  26. FAMOTIDINE [Concomitant]
     Active Substance: FAMOTIDINE
  27. LISINOPRIL [Concomitant]
     Active Substance: LISINOPRIL
  28. SUCRALFATE [Concomitant]
     Active Substance: SUCRALFATE
  29. PREZISTA [Concomitant]
     Active Substance: DARUNAVIR ETHANOLATE
  30. NORVIR [Concomitant]
     Active Substance: RITONAVIR
  31. AZITHROMYCIN [Concomitant]
     Active Substance: AZITHROMYCIN
  32. PREDNISONE [Concomitant]
     Active Substance: PREDNISONE
  33. QVAR [Concomitant]
     Active Substance: BECLOMETHASONE DIPROPIONATE
  34. CEFACLOR [Concomitant]
     Active Substance: CEFACLOR
  35. EGRIFTA [Concomitant]
     Active Substance: TESAMORELIN ACETATE
  36. METHYLPHENIDATE [Concomitant]
     Active Substance: METHYLPHENIDATE
  37. FLUNISOLIDE [Concomitant]
     Active Substance: FLUNISOLIDE
  38. ADDERALL [Concomitant]
     Active Substance: AMPHETAMINE ASPARTATE\AMPHETAMINE SULFATE\DEXTROAMPHETAMINE SACCHARATE\DEXTROAMPHETAMINE SULFATE
  39. ANDROGEL [Concomitant]
     Active Substance: TESTOSTERONE
  40. NORTRIPTYLINE [Concomitant]
     Active Substance: NORTRIPTYLINE
  41. BACLOFEN [Concomitant]
     Active Substance: BACLOFEN
  42. FLUCONAZOLE [Concomitant]
     Active Substance: FLUCONAZOLE
  43. DOXYCYCLINE [Concomitant]
     Active Substance: DOXYCYCLINE
  44. CLINDAMYCIN [Concomitant]
     Active Substance: CLINDAMYCIN
  45. SELENIUM [Concomitant]
     Active Substance: SELENIUM
  46. TIVICAY [Concomitant]
     Active Substance: DOLUTEGRAVIR SODIUM
  47. INTELENCE [Concomitant]
     Active Substance: ETRAVIRINE
  48. SUSTIVA [Concomitant]
     Active Substance: EFAVIRENZ
  49. METRONIDAZOLE [Concomitant]
     Active Substance: METRONIDAZOLE
  50. LONOX [Concomitant]
     Active Substance: ATROPINE SULFATE\DIPHENOXYLATE HYDROCHLORIDE
  51. FLURAZEPAM [Concomitant]
     Active Substance: FLURAZEPAM HYDROCHLORIDE
  52. RANIBIZUMAB [Concomitant]
     Active Substance: RANIBIZUMAB
  53. BEVACIZUMAB [Concomitant]
     Active Substance: BEVACIZUMAB
  54. DEPO-TESTOSTERONE [Concomitant]
     Active Substance: TESTOSTERONE CYPIONATE
  55. CYANOCOBALAMIN [Concomitant]
     Active Substance: CYANOCOBALAMIN
  56. COMBIVENT [Concomitant]
     Active Substance: ALBUTEROL SULFATE\IPRATROPIUM BROMIDE
  57. FISH OIL\OMEGA-3 FATTY ACIDS [Concomitant]
     Active Substance: FISH OIL\OMEGA-3 FATTY ACIDS
  58. CLOTRIMAZOLE [Concomitant]
     Active Substance: CLOTRIMAZOLE
  59. MELATONIN [Concomitant]
     Active Substance: MELATONIN
  60. NORTRIPTYLINE [Concomitant]
     Active Substance: NORTRIPTYLINE
  61. ASPIRIN [Concomitant]
     Active Substance: ASPIRIN
  62. ELIQUIS [Concomitant]
     Active Substance: APIXABAN
  63. PANTOPRAZOLE [Concomitant]
     Active Substance: PANTOPRAZOLE
  64. TERAZOSIN [Concomitant]
     Active Substance: TERAZOSIN HYDROCHLORIDE
  65. MIRTAZAPINE [Concomitant]
     Active Substance: MIRTAZAPINE
  66. GABAPENTIN [Concomitant]
     Active Substance: GABAPENTIN
  67. DULOXETINE [Concomitant]
     Active Substance: DULOXETINE
  68. ALLOPURINOL [Concomitant]
     Active Substance: ALLOPURINOL
  69. FUROSEMIDE [Concomitant]
     Active Substance: FUROSEMIDE
  70. RAYALDEE [Concomitant]
     Active Substance: CALCIFEDIOL
  71. AMITIZA [Concomitant]
     Active Substance: LUBIPROSTONE
  72. VALACYCLOVIR HYDROCHLORIDE [Concomitant]
     Active Substance: VALACYCLOVIR HYDROCHLORIDE
  73. ACETAMINOPHEN [Concomitant]
     Active Substance: ACETAMINOPHEN
  74. ACYCLOVIR [Concomitant]
     Active Substance: ACYCLOVIR
  75. AMITRIPTYLINE [Concomitant]
     Active Substance: AMITRIPTYLINE
  76. AMOXICILLIN [Concomitant]
     Active Substance: AMOXICILLIN
  77. AMPICILLIN [Concomitant]
     Active Substance: AMPICILLIN
  78. ARMOUR THYROID [Concomitant]
     Active Substance: THYROID, PORCINE
  79. ASPIRIN [Concomitant]
     Active Substance: ASPIRIN
  80. ATORVASTATIN [Concomitant]
     Active Substance: ATORVASTATIN
  81. FLEET LAXATIVE [Concomitant]
  82. FLOMAX [Concomitant]
     Active Substance: TAMSULOSIN HYDROCHLORIDE
  83. LASIX [Concomitant]
     Active Substance: FUROSEMIDE
  84. PENICILLIN G [Concomitant]
     Active Substance: PENICILLIN G
  85. COMBIVIR [Concomitant]
     Active Substance: LAMIVUDINE\ZIDOVUDINE
  86. EMTRIVA [Concomitant]
     Active Substance: EMTRICITABINE
  87. EPIVIR [Concomitant]
     Active Substance: LAMIVUDINE
  88. ISENTRESS [Concomitant]
     Active Substance: RALTEGRAVIR POTASSIUM
  89. NORVIR [Concomitant]
     Active Substance: RITONAVIR
  90. RESCRIPTOR [Concomitant]
     Active Substance: DELAVIRDINE MESYLATE
  91. RETROVIR [Concomitant]
     Active Substance: ZIDOVUDINE
  92. TROGARZO [Concomitant]
     Active Substance: IBALIZUMAB-UIYK
  93. VIDEX [Concomitant]
     Active Substance: DIDANOSINE
  94. VIDEX EC [Concomitant]
     Active Substance: DIDANOSINE
  95. VIRAMUNE [Concomitant]
     Active Substance: NEVIRAPINE
  96. ZERIT [Concomitant]
     Active Substance: STAVUDINE

REACTIONS (14)
  - Chronic kidney disease [Not Recovered/Not Resolved]
  - Hip arthroplasty [Not Recovered/Not Resolved]
  - Hip arthroplasty [Not Recovered/Not Resolved]
  - Acute kidney injury [Not Recovered/Not Resolved]
  - Renal failure [Unknown]
  - Emotional distress [Unknown]
  - Anhedonia [Unknown]
  - Economic problem [Unknown]
  - Loss of personal independence in daily activities [Unknown]
  - Bone loss [Unknown]
  - Osteopenia [Unknown]
  - Bone density decreased [Unknown]
  - Anxiety [Unknown]
  - Pain [Unknown]

NARRATIVE: CASE EVENT DATE: 20100506
